FAERS Safety Report 10459734 (Version 1)
Quarter: 2014Q3

REPORT INFORMATION
  Report Type: Spontaneous
  Country: US (occurrence: US)
  Receive Date: 20140917
  Receipt Date: 20140917
  Transmission Date: 20150326
  Serious: Yes (Hospitalization)
  Sender: FDA-Public Use
  Company Number: US-GLAXOSMITHKLINE-A1088449A

PATIENT
  Age: 47 Year
  Sex: Male

DRUGS (7)
  1. VENTOLIN [Suspect]
     Active Substance: ALBUTEROL SULFATE
     Indication: ASTHMA
     Route: 055
  2. NEURONTIN [Concomitant]
     Active Substance: GABAPENTIN
  3. ANTIDEPRESSANTS [Concomitant]
     Active Substance: UNSPECIFIED INGREDIENT
  4. XANAX [Concomitant]
     Active Substance: ALPRAZOLAM
  5. ATIVAN [Concomitant]
     Active Substance: LORAZEPAM
  6. ADVAIR HFA [Suspect]
     Active Substance: FLUTICASONE PROPIONATE\SALMETEROL XINAFOATE
     Indication: ASTHMA
     Dosage: 1PUFF TWICE PER DAY
     Route: 055
  7. TRAMADOL [Concomitant]
     Active Substance: TRAMADOL

REACTIONS (8)
  - Feeling abnormal [Unknown]
  - Pneumonia [Unknown]
  - Nasopharyngitis [Unknown]
  - Intensive care [Unknown]
  - Lung disorder [Unknown]
  - Viral infection [Unknown]
  - Overdose [Unknown]
  - Drug abuse [Unknown]

NARRATIVE: CASE EVENT DATE: 2013
